FAERS Safety Report 20482216 (Version 1)
Quarter: 2022Q1

REPORT INFORMATION
  Report Type: Spontaneous
  Country: US (occurrence: US)
  Receive Date: 20220216
  Receipt Date: 20220216
  Transmission Date: 20220423
  Serious: Yes (Hospitalization)
  Sender: FDA-Public Use
  Company Number: US-BEH-2022142112

PATIENT
  Age: 62 Year
  Sex: Male

DRUGS (1)
  1. PRIVIGEN [Suspect]
     Active Substance: HUMAN IMMUNOGLOBULIN G
     Dosage: 260 GRAM
     Route: 042

REACTIONS (4)
  - Rash [Unknown]
  - Hypertension [Unknown]
  - Unevaluable event [Unknown]
  - Fluid retention [Unknown]
